FAERS Safety Report 15977979 (Version 2)
Quarter: 2019Q1

REPORT INFORMATION
  Report Type: Spontaneous
  Country: GB (occurrence: GB)
  Receive Date: 20190218
  Receipt Date: 20190226
  Transmission Date: 20190418
  Serious: Yes (Death, Other)
  Sender: FDA-Public Use
  Company Number: GB-AUROBINDO-AUR-APL-2019-008893

PATIENT

DRUGS (28)
  1. LINEZOLID. [Suspect]
     Active Substance: LINEZOLID
     Indication: BACTEROIDES INFECTION
  2. ERYTHROMYCIN. [Suspect]
     Active Substance: ERYTHROMYCIN
     Indication: HAEMODYNAMIC INSTABILITY
  3. MOXIFLOXACIN. [Suspect]
     Active Substance: MOXIFLOXACIN
     Indication: ANTIBIOTIC THERAPY
     Dosage: UNK
     Route: 065
  4. CEFTAZIDIME. [Suspect]
     Active Substance: CEFTAZIDIME
     Indication: SEPSIS
  5. LINEZOLID. [Suspect]
     Active Substance: LINEZOLID
     Indication: HAEMODYNAMIC INSTABILITY
  6. ERYTHROMYCIN. [Suspect]
     Active Substance: ERYTHROMYCIN
     Indication: ANTIBIOTIC THERAPY
     Dosage: UNK
     Route: 065
  7. MOXIFLOXACIN. [Suspect]
     Active Substance: MOXIFLOXACIN
     Indication: HAEMODYNAMIC INSTABILITY
  8. MOXIFLOXACIN. [Suspect]
     Active Substance: MOXIFLOXACIN
     Indication: BACTEROIDES INFECTION
  9. CEFTAZIDIME. [Suspect]
     Active Substance: CEFTAZIDIME
     Indication: ANTIBIOTIC THERAPY
     Dosage: UNK
     Route: 065
  10. METRONIDAZOLE. [Suspect]
     Active Substance: METRONIDAZOLE
     Indication: ANTIBIOTIC THERAPY
     Dosage: UNK
     Route: 065
  11. PENICILLIN N [Suspect]
     Active Substance: ADICILLIN
     Indication: HAEMODYNAMIC INSTABILITY
  12. METRONIDAZOLE. [Suspect]
     Active Substance: METRONIDAZOLE
     Indication: HAEMODYNAMIC INSTABILITY
  13. MEROPENEM. [Suspect]
     Active Substance: MEROPENEM
     Indication: ANTIBIOTIC THERAPY
     Dosage: UNK
     Route: 065
  14. ERYTHROMYCIN. [Suspect]
     Active Substance: ERYTHROMYCIN
     Indication: SEPSIS
  15. METRONIDAZOLE. [Suspect]
     Active Substance: METRONIDAZOLE
     Indication: SEPSIS
  16. MEROPENEM. [Suspect]
     Active Substance: MEROPENEM
     Indication: HAEMODYNAMIC INSTABILITY
  17. CEFTAZIDIME. [Suspect]
     Active Substance: CEFTAZIDIME
     Indication: HAEMODYNAMIC INSTABILITY
  18. LINEZOLID. [Suspect]
     Active Substance: LINEZOLID
     Indication: CNS VENTRICULITIS
  19. MOXIFLOXACIN. [Suspect]
     Active Substance: MOXIFLOXACIN
     Indication: SEPSIS
  20. MOXIFLOXACIN. [Suspect]
     Active Substance: MOXIFLOXACIN
     Indication: CNS VENTRICULITIS
  21. AMIKACIN. [Suspect]
     Active Substance: AMIKACIN
     Indication: ANTIBIOTIC THERAPY
     Dosage: UNK
     Route: 065
  22. AMIKACIN. [Suspect]
     Active Substance: AMIKACIN
     Indication: HAEMODYNAMIC INSTABILITY
  23. MEROPENEM. [Suspect]
     Active Substance: MEROPENEM
     Indication: SEPSIS
  24. PENICILLIN N [Suspect]
     Active Substance: ADICILLIN
     Indication: ANTIBIOTIC THERAPY
     Dosage: UNK
     Route: 065
  25. PENICILLIN N [Suspect]
     Active Substance: ADICILLIN
     Indication: SEPSIS
  26. LINEZOLID. [Suspect]
     Active Substance: LINEZOLID
     Indication: ANTIBIOTIC THERAPY
     Dosage: UNK
     Route: 065
  27. LINEZOLID. [Suspect]
     Active Substance: LINEZOLID
     Indication: SEPSIS
  28. AMIKACIN. [Suspect]
     Active Substance: AMIKACIN
     Indication: SEPSIS

REACTIONS (4)
  - Septic shock [Fatal]
  - Drug ineffective [Fatal]
  - Haemodynamic instability [Fatal]
  - Multiple-drug resistance [Unknown]
